FAERS Safety Report 13696773 (Version 1)
Quarter: 2017Q2

REPORT INFORMATION
  Report Type: Spontaneous
  Country: US (occurrence: US)
  Receive Date: 20170627
  Receipt Date: 20170627
  Transmission Date: 20170830
  Serious: Yes (Disabling)
  Sender: FDA-Public Use
  Company Number: None

PATIENT
  Age: 36 Year
  Sex: Female
  Weight: 60.3 kg

DRUGS (5)
  1. TERBUTALINE SULFATE. [Concomitant]
     Active Substance: TERBUTALINE SULFATE
  2. VALIUM [Concomitant]
     Active Substance: DIAZEPAM
  3. CHAMOMILE TEA [Concomitant]
     Active Substance: MATRICARIA RECUTITA
  4. TYLENOL [Concomitant]
     Active Substance: ACETAMINOPHEN
  5. KLONOPIN [Suspect]
     Active Substance: CLONAZEPAM
     Indication: AKATHISIA
     Dosage: ?          OTHER STRENGTH:MG;QUANTITY:1 TABLET(S);?
     Route: 048

REACTIONS (17)
  - Disorientation [None]
  - Muscle rigidity [None]
  - Seizure [None]
  - Thinking abnormal [None]
  - Pain [None]
  - Depression [None]
  - Fatigue [None]
  - Illusion [None]
  - Delirium [None]
  - Gait disturbance [None]
  - Nausea [None]
  - Withdrawal syndrome [None]
  - Drug use disorder [None]
  - Decreased activity [None]
  - Abnormal behaviour [None]
  - Suicidal ideation [None]
  - Schizoaffective disorder [None]

NARRATIVE: CASE EVENT DATE: 20030101
